FAERS Safety Report 8583731-1 (Version None)
Quarter: 2012Q3

REPORT INFORMATION
  Report Type: 
  Country: None (occurrence: None)
  Receive Date: 20120810
  Receipt Date: 20120719
  Transmission Date: 20120928
  Serious: Yes (Other)
  Sender: FDA-Public Use
  Company Number: JP-009507513-1207JPN007966

PATIENT

DRUGS (8)
  1. REBETOL [Suspect]
     Route: 048
     Dates: start: 20120525, end: 20120531
  2. PEG-INTRON [Suspect]
     Dosage: 1.5MCG/KG/WEEK
     Route: 058
     Dates: start: 20120622
  3. TELAVIC [Suspect]
     Indication: HEPATITIS C
     Route: 048
     Dates: start: 20120511, end: 20120531
  4. PEG-INTRON [Suspect]
     Indication: HEPATITIS C
     Dosage: 1.5MCG/KG/WEEK
     Route: 058
     Dates: start: 20120511, end: 20120601
  5. REBETOL [Suspect]
     Indication: HEPATITIS C
     Route: 048
     Dates: start: 20120511, end: 20120524
  6. REBETOL [Suspect]
     Route: 048
     Dates: start: 20120629
  7. TELAVIC [Suspect]
     Route: 048
     Dates: start: 20120601, end: 20120607
  8. REBETOL [Suspect]
     Route: 048
     Dates: start: 20120601, end: 20120607

REACTIONS (2)
  - HYPERURICAEMIA [None]
  - HAEMOGLOBIN DECREASED [None]
